FAERS Safety Report 9014764 (Version 1)
Quarter: 2013Q1

REPORT INFORMATION
  Report Type: Spontaneous
  Country: BR (occurrence: BR)
  Receive Date: 20130115
  Receipt Date: 20130115
  Transmission Date: 20140127
  Serious: Yes (Hospitalization, Disabling, Other)
  Sender: FDA-Public Use
  Company Number: BR-PFIZER INC-2013015829

PATIENT
  Age: 94 Year
  Sex: Female

DRUGS (5)
  1. LIPITOR [Suspect]
     Indication: BLOOD CHOLESTEROL
     Dosage: 20 MG, 1X/DAY
     Dates: start: 201201
  2. ASPIRINA PREVENT [Concomitant]
     Dosage: UNK
     Dates: start: 2003
  3. DIOVAN ^NOVARTIS^ [Concomitant]
     Indication: BLOOD PRESSURE INCREASED
     Dosage: UNK
     Dates: start: 2011
  4. SELOZOK [Concomitant]
     Indication: BLOOD PRESSURE INCREASED
     Dosage: UNK
     Dates: start: 2003
  5. SUSTRATE [Concomitant]
     Indication: BLOOD PRESSURE INCREASED
     Dosage: UNK
     Dates: start: 2003

REACTIONS (3)
  - Cerebrovascular accident [Unknown]
  - Abasia [Unknown]
  - Eating disorder [Unknown]
